FAERS Safety Report 15839289 (Version 1)
Quarter: 2019Q1

REPORT INFORMATION
  Report Type: Report from Study
  Country: BR (occurrence: BR)
  Receive Date: 20190117
  Receipt Date: 20190117
  Transmission Date: 20190417
  Serious: Yes (Hospitalization)
  Sender: FDA-Public Use
  Company Number: PHHY2019BR007173

PATIENT
  Sex: Male
  Weight: 65 kg

DRUGS (1)
  1. SANDOSTATIN LAR DEPOT [Suspect]
     Active Substance: OCTREOTIDE ACETATE
     Indication: PRODUCT USED FOR UNKNOWN INDICATION
     Dosage: 30 MG, QMO (EVERY 28 DAYS)
     Route: 030

REACTIONS (2)
  - Post procedural complication [Recovering/Resolving]
  - Meningitis viral [Recovering/Resolving]
